FAERS Safety Report 5460305-2 (Version None)
Quarter: 2007Q3

REPORT INFORMATION
  Report Type: 
  Country: None (occurrence: None)
  Receive Date: 20070919
  Receipt Date: 20070907
  Transmission Date: 20080115
  Serious: Yes (Other)
  Sender: FDA-Public Use
  Company Number: US-PFIZER INC-2007067643

PATIENT
  Sex: Female
  Weight: 62.6 kg

DRUGS (4)
  1. CHANTIX [Suspect]
     Indication: SMOKING CESSATION THERAPY
     Route: 048
  2. ALDACTONE [Suspect]
     Indication: POLYURIA
  3. MECLIZINE [Concomitant]
     Indication: MENIERE'S DISEASE
  4. VITAMINS [Concomitant]

REACTIONS (2)
  - ABASIA [None]
  - IMPAIRED DRIVING ABILITY [None]
